FAERS Safety Report 8170572-2 (Version None)
Quarter: 2012Q1

REPORT INFORMATION
  Report Type: 
  Country: None (occurrence: None)
  Receive Date: 20120228
  Receipt Date: 20120221
  Transmission Date: 20120608
  Serious: Yes (Hospitalization)
  Sender: FDA-Public Use
  Company Number: IT-BAXTER-2012BH005282

PATIENT
  Age: 73 Year
  Sex: Female

DRUGS (2)
  1. CYCLOPHOSPHAMIDE [Suspect]
     Indication: BREAST CANCER
     Route: 042
     Dates: start: 20110330, end: 20110330
  2. TAXOTERE [Suspect]
     Indication: BREAST CANCER
     Route: 042
     Dates: start: 20110330, end: 20110330

REACTIONS (5)
  - ATRIAL FIBRILLATION [None]
  - LEUKOPENIA [None]
  - NAUSEA [None]
  - DECREASED APPETITE [None]
  - ASTHENIA [None]
